FAERS Safety Report 18364417 (Version 1)
Quarter: 2020Q4

REPORT INFORMATION
  Report Type: Spontaneous
  Country: US (occurrence: US)
  Receive Date: 20201008
  Receipt Date: 20201008
  Transmission Date: 20210114
  Serious: Yes (Life-Threatening, Hospitalization, Disabling, Other)
  Sender: FDA-Public Use
  Company Number: None

PATIENT
  Age: 16 Year
  Sex: Female
  Weight: 89.55 kg

DRUGS (9)
  1. FISH OIL [Concomitant]
     Active Substance: FISH OIL
  2. LUPRON DEPOT [Suspect]
     Active Substance: LEUPROLIDE ACETATE
     Indication: ENDOMETRIOSIS
     Dosage: ?          OTHER FREQUENCY:1X PER MONTH;?
     Route: 030
     Dates: start: 19970201, end: 20010701
  3. VITAMIN D [Concomitant]
     Active Substance: VITAMIN D NOS
  4. PROBIOTIC [Concomitant]
     Active Substance: PROBIOTICS NOS
  5. CYMBALTA [Concomitant]
     Active Substance: DULOXETINE HYDROCHLORIDE
  6. VITAMIN B12 [Concomitant]
     Active Substance: CYANOCOBALAMIN
  7. METHADONE [Concomitant]
     Active Substance: METHADONE HYDROCHLORIDE
  8. GABAPENTIN. [Concomitant]
     Active Substance: GABAPENTIN
  9. COENZYME Q10 [Concomitant]
     Active Substance: DIETARY SUPPLEMENT\UBIDECARENONE

REACTIONS (5)
  - Illness [None]
  - Bone loss [None]
  - Bone pain [None]
  - Depression [None]
  - Arthralgia [None]

NARRATIVE: CASE EVENT DATE: 19970201
